FAERS Safety Report 23158206 (Version 1)
Quarter: 2023Q4

REPORT INFORMATION
  Report Type: Spontaneous
  Country: CN (occurrence: CN)
  Receive Date: 20231108
  Receipt Date: 20231108
  Transmission Date: 20240110
  Serious: Yes (Life-Threatening, Hospitalization)
  Sender: FDA-Public Use
  Company Number: CN-BAT-2023BAT000352

PATIENT
  Age: 80 Year
  Sex: Female
  Weight: 50.0 kg

DRUGS (1)
  1. TOFIDENCE [Suspect]
     Active Substance: TOCILIZUMAB-BAVI
     Indication: Systemic inflammatory response syndrome
     Dosage: ONE SINGLE DOSE
     Route: 041
     Dates: start: 20230831, end: 20230831

REACTIONS (2)
  - Anaphylactic shock [Recovering/Resolving]
  - Off label use [Unknown]

NARRATIVE: CASE EVENT DATE: 20230831
